FAERS Safety Report 6688869-1 (Version None)
Quarter: 2010Q2

REPORT INFORMATION
  Report Type: 
  Country: None (occurrence: None)
  Receive Date: 20100420
  Receipt Date: 20100406
  Transmission Date: 20101027
  Serious: Yes (Other)
  Sender: FDA-Public Use
  Company Number: BR-ELI_LILLY_AND_COMPANY-BR201003002802

PATIENT
  Sex: Female

DRUGS (3)
  1. FORTEO [Suspect]
     Indication: OSTEOPOROSIS
     Dosage: UNK, DAILY (1/D)
     Route: 058
     Dates: start: 20091001
  2. DIURISA [Concomitant]
     Indication: OEDEMA PERIPHERAL
     Dosage: UNK, OTHER
     Route: 048
     Dates: start: 20090901
  3. PRESSAT [Concomitant]
     Indication: HYPERTENSION
     Dosage: 5 MG, OTHER
     Route: 048

REACTIONS (10)
  - BEDRIDDEN [None]
  - FALL [None]
  - HEAD INJURY [None]
  - HYPOTENSION [None]
  - INJECTION SITE IRRITATION [None]
  - INJECTION SITE PAIN [None]
  - PAIN [None]
  - RIB FRACTURE [None]
  - SENSATION OF HEAVINESS [None]
  - SPINAL FRACTURE [None]
